FAERS Safety Report 11470564 (Version 2)
Quarter: 2015Q3

REPORT INFORMATION
  Report Type: Spontaneous
  Country: US (occurrence: US)
  Receive Date: 20150903
  Receipt Date: 20150903
  Transmission Date: 20151125
  Serious: No
  Sender: FDA-Public Use
  Company Number: US-ELI_LILLY_AND_COMPANY-US201112006752

PATIENT
  Sex: Female

DRUGS (1)
  1. CYMBALTA [Suspect]
     Active Substance: DULOXETINE HYDROCHLORIDE
     Dosage: UNK, UNKNOWN

REACTIONS (8)
  - Depression [Unknown]
  - Insomnia [Unknown]
  - Confusional state [Unknown]
  - Fibromyalgia [Unknown]
  - Musculoskeletal disorder [Unknown]
  - Anxiety [Unknown]
  - Spinal disorder [Unknown]
  - Amnesia [Unknown]
